FAERS Safety Report 24412586 (Version 1)
Quarter: 2024Q4

REPORT INFORMATION
  Report Type: Spontaneous
  Country: US (occurrence: None)
  Receive Date: 20241007
  Receipt Date: 20241007
  Transmission Date: 20250115
  Serious: Yes (Hospitalization)
  Sender: Public
  Company Number: None

PATIENT
  Age: 66 Year
  Sex: Male
  Weight: 71.7 kg

DRUGS (8)
  1. COSENTYX [Suspect]
     Active Substance: SECUKINUMAB
     Indication: Psoriatic arthropathy
     Dates: start: 20240119, end: 20240220
  2. CERTOLIZUMAB PEGOL PREFILLED SYRINGE (CIMZIA) [Concomitant]
  3. CHOLECALCIFEROL (VITAMIN D-3) [Concomitant]
  4. CLOBETASOL 0.05% OINTMENT (TEMOVATE) [Concomitant]
  5. CYANOCOBALAMIN (VITAMIN B-12) [Concomitant]
  6. VALIUM [Concomitant]
     Active Substance: DIAZEPAM
  7. NM-6603 [Concomitant]
     Active Substance: NM-6603
  8. CHOLECALCIFEROL [Concomitant]
     Active Substance: CHOLECALCIFEROL

REACTIONS (5)
  - Dyspnoea [None]
  - Blood pressure decreased [None]
  - Dizziness [None]
  - Overdose [None]
  - Pleural effusion [None]

NARRATIVE: CASE EVENT DATE: 20240219
